FAERS Safety Report 13034222 (Version 1)
Quarter: 2016Q4

REPORT INFORMATION
  Report Type: Spontaneous
  Country: US (occurrence: US)
  Receive Date: 20161215
  Receipt Date: 20161215
  Transmission Date: 20170207
  Serious: Yes (Life-Threatening, Hospitalization, Disabling, Other)
  Sender: FDA-Public Use
  Company Number: None

PATIENT
  Age: 75 Year
  Sex: Male
  Weight: 88 kg

DRUGS (1)
  1. XARELTO [Suspect]
     Active Substance: RIVAROXABAN
     Indication: ATRIAL FIBRILLATION
     Route: 048
     Dates: start: 20151217, end: 20161215

REACTIONS (6)
  - Muscle spasms [None]
  - Pain in extremity [None]
  - Peripheral swelling [None]
  - Ecchymosis [None]
  - Compartment syndrome [None]
  - Contusion [None]

NARRATIVE: CASE EVENT DATE: 20161214
